FAERS Safety Report 11738285 (Version 2)
Quarter: 2015Q4

REPORT INFORMATION
  Report Type: Spontaneous
  Country: US (occurrence: US)
  Receive Date: 20151113
  Receipt Date: 20151208
  Transmission Date: 20160304
  Serious: Yes (Death, Life-Threatening, Hospitalization, Disabling, Other)
  Sender: FDA-Public Use
  Company Number: US-GILEAD-2015-0181654

PATIENT
  Age: 76 Year
  Sex: Male
  Weight: 72.56 kg

DRUGS (8)
  1. OMEPRAZOLE. [Concomitant]
     Active Substance: OMEPRAZOLE
  2. COZAAR [Concomitant]
     Active Substance: LOSARTAN POTASSIUM
  3. METOPROLOL [Concomitant]
     Active Substance: METOPROLOL
  4. LEVOTHROID [Concomitant]
     Active Substance: LEVOTHYROXINE SODIUM
  5. ALLOPURINOL. [Concomitant]
     Active Substance: ALLOPURINOL
  6. IMDUR [Concomitant]
     Active Substance: ISOSORBIDE MONONITRATE
  7. PREDNISONE. [Concomitant]
     Active Substance: PREDNISONE
     Dosage: 10 G, UNK
  8. RANEXA [Suspect]
     Active Substance: RANOLAZINE
     Indication: CORONARY ARTERY DISEASE
     Dosage: 500 MG, UNK
     Route: 048
     Dates: start: 2012

REACTIONS (2)
  - Cerebrovascular accident [Fatal]
  - Off label use [Unknown]

NARRATIVE: CASE EVENT DATE: 2012
